FAERS Safety Report 7684909-1 (Version None)
Quarter: 2011Q3

REPORT INFORMATION
  Report Type: 
  Country: None (occurrence: None)
  Receive Date: 20110810
  Receipt Date: 20110804
  Transmission Date: 20111222
  Serious: Yes (Death, Hospitalization)
  Sender: FDA-Public Use
  Company Number: TPA2011A04389

PATIENT
  Age: 85 Year
  Sex: Female
  Weight: 53.5244 kg

DRUGS (10)
  1. VERAPAMIL [Concomitant]
  2. ALBUTEROL [Concomitant]
  3. IPRATROPIUM BROMIDE [Concomitant]
  4. PIOGLITAZONE HCL [Suspect]
     Indication: PROPHYLAXIS
     Dates: start: 20060720, end: 20110126
  5. PIOGLITAZONE HCL [Suspect]
     Indication: MYOCARDIAL INFARCTION
     Dates: start: 20060720, end: 20110126
  6. PIOGLITAZONE HCL [Suspect]
     Indication: CEREBROVASCULAR ACCIDENT
     Dates: start: 20060720, end: 20110126
  7. LABETALOL HCL [Concomitant]
  8. LIPITOR [Concomitant]
  9. WARFARIN SODIUM [Concomitant]
  10. PREDNISONE [Concomitant]

REACTIONS (5)
  - CARDIAC FAILURE CONGESTIVE [None]
  - PULMONARY CONGESTION [None]
  - WHEEZING [None]
  - DYSPHAGIA [None]
  - CARDIOMEGALY [None]
